FAERS Safety Report 16420323 (Version 1)
Quarter: 2019Q2

REPORT INFORMATION
  Report Type: Spontaneous
  Country: NL (occurrence: NL)
  Receive Date: 20190612
  Receipt Date: 20190612
  Transmission Date: 20190711
  Serious: Yes (Death)
  Sender: FDA-Public Use
  Company Number: NL-ACTELION-A-CH2019-191203

PATIENT
  Age: 14 Month

DRUGS (3)
  1. SILDENAFIL. [Concomitant]
     Active Substance: SILDENAFIL
  2. BOSENTAN. [Suspect]
     Active Substance: BOSENTAN
     Indication: PULMONARY HYPERTENSION
     Route: 048
  3. OXYGEN. [Concomitant]
     Active Substance: OXYGEN
     Route: 055

REACTIONS (5)
  - Enteral nutrition [Unknown]
  - Cyanosis [Fatal]
  - Pulmonary hypertension [Fatal]
  - Right ventricular failure [Unknown]
  - Right ventricular hypertrophy [Unknown]
